FAERS Safety Report 17408041 (Version 4)
Quarter: 2020Q2

REPORT INFORMATION
  Report Type: Report from Study
  Country: CN (occurrence: CN)
  Receive Date: 20200212
  Receipt Date: 20200401
  Transmission Date: 20200713
  Serious: Yes (Hospitalization)
  Sender: FDA-Public Use
  Company Number: CN-KARYOPHARM-2020KPT000142

PATIENT
  Age: 50 Year
  Sex: Male

DRUGS (4)
  1. SELINEXOR [Suspect]
     Active Substance: SELINEXOR
     Indication: PLASMA CELL MYELOMA
     Dosage: 80 MG, 2X/WEEK
     Route: 048
     Dates: start: 20200103
  2. DEXAMETHASONE. [Suspect]
     Active Substance: DEXAMETHASONE
     Indication: PLASMA CELL MYELOMA
     Dosage: 20 MG, 2X/WEEK
     Route: 048
     Dates: start: 20200103
  3. MECOBALAMINE [Concomitant]
     Active Substance: METHYLCOBALAMIN
     Indication: NERVE INJURY
  4. MECOBALAMINE [Concomitant]
     Active Substance: METHYLCOBALAMIN
     Indication: PATHOLOGICAL FRACTURE
     Dosage: 1.5 MG, QD
     Route: 048

REACTIONS (1)
  - Acute kidney injury [Not Recovered/Not Resolved]

NARRATIVE: CASE EVENT DATE: 20200123
